FAERS Safety Report 8387376-8 (Version None)
Quarter: 2012Q2

REPORT INFORMATION
  Report Type: 
  Country: None (occurrence: None)
  Receive Date: 20120525
  Receipt Date: 20120521
  Transmission Date: 20120825
  Serious: Yes (Other)
  Sender: FDA-Public Use
  Company Number: US-BAYER-2011-113809

PATIENT
  Age: 48 Year
  Sex: Female
  Weight: 63.039 kg

DRUGS (4)
  1. YAZ [Suspect]
     Indication: MENOPAUSAL SYMPTOMS
     Dosage: UNK
     Dates: start: 20060701, end: 20070701
  2. IBUPROFEN [Concomitant]
  3. VITAMIN C [Concomitant]
  4. YAZ [Suspect]
     Indication: PREMENSTRUAL SYNDROME

REACTIONS (4)
  - DEEP VEIN THROMBOSIS [None]
  - PAIN IN EXTREMITY [None]
  - INJURY [None]
  - EMOTIONAL DISTRESS [None]
